FAERS Safety Report 6503562-3 (Version None)
Quarter: 2009Q4

REPORT INFORMATION
  Report Type: 
  Country: None (occurrence: None)
  Receive Date: 20091217
  Receipt Date: 20091202
  Transmission Date: 20100525
  Serious: Yes (Death, Life-Threatening, Hospitalization, Other)
  Sender: FDA-Public Use
  Company Number: US-TYCO HEALTHCARE/MALLINCKRODT-T200902242

PATIENT
  Age: 72 Year
  Sex: Female

DRUGS (6)
  1. HYDROMORPHONE [Suspect]
     Indication: PAIN
     Dosage: UNK
  2. CARDIZEM [Concomitant]
     Dosage: 120 MG, QD
  3. COUMADIN [Concomitant]
     Dosage: 2.5 MG, QD
  4. DIGOXIN                            /00545901/ [Concomitant]
     Dosage: 0.125 MG, QD
  5. ALBUTEROL [Concomitant]
  6. DIAZEPAM [Concomitant]
     Dosage: 5 MG, BID

REACTIONS (6)
  - BRADYCARDIA [None]
  - CHRONIC OBSTRUCTIVE PULMONARY DISEASE [None]
  - DEATH [None]
  - DELIRIUM [None]
  - LOBAR PNEUMONIA [None]
  - RESPIRATORY ARREST [None]
